FAERS Safety Report 25362988 (Version 1)
Quarter: 2025Q2

REPORT INFORMATION
  Report Type: Spontaneous
  Country: CN (occurrence: CN)
  Receive Date: 20250527
  Receipt Date: 20250527
  Transmission Date: 20250716
  Serious: Yes (Other)
  Sender: PFIZER
  Company Number: CN-PFIZER INC-PV202500060040

PATIENT
  Age: 67 Year
  Sex: Female

DRUGS (1)
  1. EPIRUBICIN HYDROCHLORIDE [Suspect]
     Active Substance: EPIRUBICIN HYDROCHLORIDE
     Indication: Breast cancer
     Dosage: 50 MG, 1X/DAY
     Route: 040
     Dates: start: 20250507, end: 20250508

REACTIONS (1)
  - Palpitations [Recovered/Resolved]

NARRATIVE: CASE EVENT DATE: 20250508
